FAERS Safety Report 7385645-1 (Version None)
Quarter: 2011Q1

REPORT INFORMATION
  Report Type: 
  Country: None (occurrence: None)
  Receive Date: 20110331
  Receipt Date: 20110326
  Transmission Date: 20110831
  Serious: No
  Sender: FDA-Public Use
  Company Number: US-BIOGENIDEC-2011BI011642

PATIENT
  Age: 42 Year
  Sex: Female

DRUGS (1)
  1. TYSABRI [Suspect]
     Indication: MULTIPLE SCLEROSIS
     Route: 042
     Dates: start: 20110325

REACTIONS (6)
  - HEADACHE [None]
  - INFLUENZA LIKE ILLNESS [None]
  - SENSATION OF HEAVINESS [None]
  - DIZZINESS [None]
  - HYPOAESTHESIA [None]
  - NAUSEA [None]
